FAERS Safety Report 16258479 (Version 3)
Quarter: 2019Q2

REPORT INFORMATION
  Report Type: Spontaneous
  Country: US (occurrence: US)
  Receive Date: 20190430
  Receipt Date: 20190605
  Transmission Date: 20190711
  Serious: No
  Sender: FDA-Public Use
  Company Number: US-BIOGEN-2019BI00705376

PATIENT
  Age: 39 Year
  Sex: Female

DRUGS (1)
  1. AVONEX [Suspect]
     Active Substance: INTERFERON BETA-1A
     Indication: MULTIPLE SCLEROSIS
     Route: 030
     Dates: start: 20170601, end: 20190218

REACTIONS (14)
  - Fear [Not Recovered/Not Resolved]
  - Feeling abnormal [Not Recovered/Not Resolved]
  - Degenerative bone disease [Unknown]
  - Nervousness [Unknown]
  - Injection site reaction [Unknown]
  - Paraesthesia [Not Recovered/Not Resolved]
  - Contusion [Unknown]
  - Anxiety [Unknown]
  - Arthralgia [Unknown]
  - Product dose omission [Unknown]
  - Aphasia [Not Recovered/Not Resolved]
  - Rash macular [Unknown]
  - Headache [Unknown]
  - Hypoaesthesia [Not Recovered/Not Resolved]

NARRATIVE: CASE EVENT DATE: 20190218
